FAERS Safety Report 7915248-9 (Version None)
Quarter: 2011Q4

REPORT INFORMATION
  Report Type: 
  Country: None (occurrence: None)
  Receive Date: 20111115
  Receipt Date: 20111101
  Transmission Date: 20120403
  Serious: No
  Sender: FDA-Public Use
  Company Number: US-B.I. PHARMACEUTICALS,INC./RIDGEFIELD-2011-BP-25297BP

PATIENT
  Age: 44 Year
  Sex: Female

DRUGS (5)
  1. ZANTAC 75 [Suspect]
     Indication: PHARYNGITIS STREPTOCOCCAL
     Dosage: 150 MG
     Route: 048
     Dates: start: 20111027
  2. OMNICEF [Suspect]
     Indication: PHARYNGITIS STREPTOCOCCAL
     Dates: start: 20111027
  3. SUDAFED 12 HOUR [Concomitant]
     Indication: SEASONAL ALLERGY
     Dates: start: 20050101
  4. CLARITIN [Concomitant]
     Indication: SEASONAL ALLERGY
     Dates: start: 20000101
  5. LOESTRIN 1.5/30 [Concomitant]
     Indication: MENOPAUSE
     Dates: start: 20100101

REACTIONS (1)
  - PRURITUS [None]
